FAERS Safety Report 18292527 (Version 3)
Quarter: 2021Q3

REPORT INFORMATION
  Report Type: Spontaneous
  Country: US (occurrence: US)
  Receive Date: 20200922
  Receipt Date: 20210810
  Transmission Date: 20211014
  Serious: Yes (Other)
  Sender: FDA-Public Use
  Company Number: US-SA-2020SA253642

PATIENT
  Age: 62 Year
  Sex: Female

DRUGS (3)
  1. ZANTAC [Suspect]
     Active Substance: RANITIDINE HYDROCHLORIDE
  2. RANITIDINE. [Suspect]
     Active Substance: RANITIDINE
     Dosage: 300 MG, QD
  3. RANITIDINE. [Suspect]
     Active Substance: RANITIDINE
     Dosage: UNK, QD

REACTIONS (6)
  - Bladder cancer [Unknown]
  - Headache [Unknown]
  - Anxiety [Unknown]
  - Gastroenteritis viral [Recovering/Resolving]
  - Diarrhoea [Unknown]
  - Injury [Unknown]

NARRATIVE: CASE EVENT DATE: 201906
